FAERS Safety Report 8095014-7 (Version None)
Quarter: 2012Q1

REPORT INFORMATION
  Report Type: 
  Country: None (occurrence: None)
  Receive Date: 20120131
  Receipt Date: 20120131
  Transmission Date: 20120608
  Serious: Yes (Hospitalization)
  Sender: FDA-Public Use
  Company Number: None

PATIENT
  Age: 71 Year
  Sex: Female
  Weight: 64 kg

DRUGS (1)
  1. ITRACONAZOLE [Suspect]
     Indication: ASPERGILLOMA
     Dosage: 200.0 MG
     Route: 048
     Dates: start: 20111107, end: 20120113

REACTIONS (5)
  - BRAIN NATRIURETIC PEPTIDE INCREASED [None]
  - ORTHOPNOEA [None]
  - OEDEMA PERIPHERAL [None]
  - DYSPNOEA [None]
  - ATRIAL FIBRILLATION [None]
